FAERS Safety Report 9382081 (Version 2)
Quarter: 2013Q4

REPORT INFORMATION
  Report Type: Spontaneous
  Country: JP (occurrence: JP)
  Receive Date: 20130703
  Receipt Date: 20131001
  Transmission Date: 20140711
  Serious: Yes (Life-Threatening)
  Sender: FDA-Public Use
  Company Number: JP-BAYER-2013-078436

PATIENT
  Age: 45 Year
  Sex: Female
  Weight: 45 kg

DRUGS (1)
  1. MIRENA [Suspect]
     Indication: DYSMENORRHOEA
     Dosage: 20 MCG/24HR, CONT
     Route: 015
     Dates: start: 20091201

REACTIONS (2)
  - Breast cancer [Unknown]
  - Off label use [None]
